FAERS Safety Report 16272606 (Version 4)
Quarter: 2019Q4

REPORT INFORMATION
  Report Type: Spontaneous
  Country: US (occurrence: US)
  Receive Date: 20190503
  Receipt Date: 20191029
  Transmission Date: 20200122
  Serious: Yes (Other)
  Sender: FDA-Public Use
  Company Number: US-ASTRAZENECA-2019SE11248

PATIENT
  Age: 19141 Day
  Sex: Male
  Weight: 129.3 kg

DRUGS (40)
  1. RANITIDINE. [Concomitant]
     Active Substance: RANITIDINE
     Route: 065
  2. CYANOCOBALAMIN. [Concomitant]
     Active Substance: CYANOCOBALAMIN
     Route: 065
  3. BUPROPION. [Concomitant]
     Active Substance: BUPROPION
  4. WELLBUTRIN [Concomitant]
     Active Substance: BUPROPION HYDROCHLORIDE
  5. ZOFRAN [Concomitant]
     Active Substance: ONDANSETRON HYDROCHLORIDE
  6. TOPROL XL [Concomitant]
     Active Substance: METOPROLOL SUCCINATE
  7. ACCUPRIL [Concomitant]
     Active Substance: QUINAPRIL HYDROCHLORIDE
     Route: 065
  8. ZOLPIDEM TARTRATE. [Concomitant]
     Active Substance: ZOLPIDEM TARTRATE
     Route: 065
  9. NORVASC [Concomitant]
     Active Substance: AMLODIPINE BESYLATE
     Route: 065
  10. NOVOLOG [Concomitant]
     Active Substance: INSULIN ASPART
     Route: 065
  11. LIPITOR [Concomitant]
     Active Substance: ATORVASTATIN CALCIUM
     Route: 065
  12. VIAGRA [Concomitant]
     Active Substance: SILDENAFIL CITRATE
     Route: 065
  13. DIAMOX SEQUELS [Concomitant]
     Active Substance: ACETAZOLAMIDE
  14. ROCALTROL [Concomitant]
     Active Substance: CALCITRIOL
  15. PROZAC [Concomitant]
     Active Substance: FLUOXETINE HYDROCHLORIDE
  16. TUMS [Concomitant]
     Active Substance: CALCIUM CARBONATE
  17. DUONEB [Concomitant]
     Active Substance: ALBUTEROL SULFATE\IPRATROPIUM BROMIDE
  18. NEXIUM [Suspect]
     Active Substance: ESOMEPRAZOLE MAGNESIUM
     Route: 048
     Dates: start: 20130710
  19. METFORMIN HCL [Concomitant]
     Active Substance: METFORMIN HYDROCHLORIDE
     Route: 065
  20. GLYBURIDE. [Concomitant]
     Active Substance: GLYBURIDE
     Route: 065
  21. LYRICA [Concomitant]
     Active Substance: PREGABALIN
  22. LISINOPRIL. [Concomitant]
     Active Substance: LISINOPRIL
  23. ELAVIL [Concomitant]
     Active Substance: AMITRIPTYLINE HYDROCHLORIDE
  24. NEXIUM [Suspect]
     Active Substance: ESOMEPRAZOLE MAGNESIUM
     Route: 048
  25. ALBUTEROL. [Concomitant]
     Active Substance: ALBUTEROL
  26. CARAFATE [Concomitant]
     Active Substance: SUCRALFATE
  27. METFORMIN [Concomitant]
     Active Substance: METFORMIN HYDROCHLORIDE
  28. NEXIUM [Suspect]
     Active Substance: ESOMEPRAZOLE MAGNESIUM
     Route: 048
     Dates: start: 20181105
  29. OXCARBAZEPINE. [Concomitant]
     Active Substance: OXCARBAZEPINE
     Route: 065
  30. METOPROLOL. [Concomitant]
     Active Substance: METOPROLOL
     Route: 065
  31. GLIPIZIDE. [Concomitant]
     Active Substance: GLIPIZIDE
     Route: 065
  32. ASPIRIN. [Concomitant]
     Active Substance: ASPIRIN
  33. PERIDEX [Concomitant]
     Active Substance: CHLORHEXIDINE GLUCONATE
  34. VICTOZA [Concomitant]
     Active Substance: LIRAGLUTIDE
  35. NEXIUM [Suspect]
     Active Substance: ESOMEPRAZOLE MAGNESIUM
     Route: 048
     Dates: start: 20140325
  36. MELOXICAM. [Concomitant]
     Active Substance: MELOXICAM
     Route: 065
  37. QUINAPRIL. [Concomitant]
     Active Substance: QUINAPRIL
     Route: 065
  38. PROVIGIL [Concomitant]
     Active Substance: MODAFINIL
     Route: 065
  39. DEMADEX [Concomitant]
     Active Substance: TORSEMIDE
  40. KLOR-CON [Concomitant]
     Active Substance: POTASSIUM CHLORIDE

REACTIONS (5)
  - Renal injury [Unknown]
  - Renal failure [Unknown]
  - Rebound acid hypersecretion [Unknown]
  - End stage renal disease [Unknown]
  - Chronic kidney disease [Unknown]

NARRATIVE: CASE EVENT DATE: 20150522
